FAERS Safety Report 4875686-8 (Version None)
Quarter: 2006Q1

REPORT INFORMATION
  Report Type: 
  Country: None (occurrence: None)
  Receive Date: 20060105
  Receipt Date: 20051222
  Transmission Date: 20060701
  Serious: Yes (Hospitalization)
  Sender: FDA-Public Use
  Company Number: 2005P1000261

PATIENT
  Age: 46 Year
  Sex: Male
  Weight: 87 kg

DRUGS (8)
  1. RETEPLASE (RETEPLASE) [Suspect]
     Indication: ACUTE MYOCARDIAL INFARCTION
     Dosage: IV
     Route: 042
     Dates: start: 20050326
  2. ABCIXIMAB (ABCIXIMAB) [Suspect]
     Indication: ACUTE MYOCARDIAL INFARCTION
  3. BISOPROLOL [Concomitant]
  4. ISOSORBIDE MONONITRATE [Concomitant]
  5. TICLOPIDINE HCL [Concomitant]
  6. TRANDOLAPRIL [Concomitant]
  7. SIMVASTATIN [Concomitant]
  8. ASPIRIN [Concomitant]

REACTIONS (1)
  - CORONARY ARTERY SURGERY [None]
